FAERS Safety Report 12592711 (Version 5)
Quarter: 2016Q4

REPORT INFORMATION
  Report Type: Spontaneous
  Country: US (occurrence: US)
  Receive Date: 20160726
  Receipt Date: 20161025
  Transmission Date: 20170207
  Serious: No
  Sender: FDA-Public Use
  Company Number: US-PFIZER INC-2016338389

PATIENT
  Age: 69 Year
  Sex: Female

DRUGS (9)
  1. SUTENT [Suspect]
     Active Substance: SUNITINIB MALATE
     Dosage: 25 MG, UNK (TAKE 1 CAPSULE BY MOUTH EVERY DAY FOR 4 WEEKS ON THEN 2 WEEKS OFF)
     Route: 048
     Dates: start: 20160708
  2. KELP [Concomitant]
     Active Substance: KELP
     Dosage: 0.15 MG, UNK
  3. LORATADINE. [Concomitant]
     Active Substance: LORATADINE
     Dosage: 10 MG, UNK
  4. OXYCODONE [Concomitant]
     Active Substance: OXYCODONE
     Dosage: 5 MG, UNK
  5. TYLENOL [Concomitant]
     Active Substance: ACETAMINOPHEN
     Dosage: 500 MG, UNK
  6. SULFAMETHOXAZOLE AND TRIMETHOPRIM [Concomitant]
     Active Substance: SULFAMETHOXAZOLE\TRIMETHOPRIM
     Dosage: UNK (SULFAMETHOXAZOLE-800, TRIMETHOPRIM-160)
  7. VITAMIN B-6 [Concomitant]
     Active Substance: PYRIDOXINE
     Dosage: 100 MG, UNK
  8. SUTENT [Suspect]
     Active Substance: SUNITINIB MALATE
     Indication: RENAL CANCER
     Dosage: 50 MG, CYCLIC (50MG Q DAY X28, OFF 14)
     Route: 048
     Dates: start: 20160706
  9. VITAMIN D [Concomitant]
     Active Substance: CHOLECALCIFEROL
     Dosage: 1000 IU, UNK

REACTIONS (13)
  - Cough [Not Recovered/Not Resolved]
  - Oral pain [Not Recovered/Not Resolved]
  - Ageusia [Unknown]
  - Inflammation [Not Recovered/Not Resolved]
  - Asthenia [Unknown]
  - Hair texture abnormal [Unknown]
  - Pain [Unknown]
  - Diarrhoea [Not Recovered/Not Resolved]
  - Nausea [Unknown]
  - Erythema [Not Recovered/Not Resolved]
  - Flatulence [Unknown]
  - Skin toxicity [Unknown]
  - Fatigue [Not Recovered/Not Resolved]

NARRATIVE: CASE EVENT DATE: 201607
